FAERS Safety Report 22940554 (Version 2)
Quarter: 2023Q4

REPORT INFORMATION
  Report Type: Spontaneous
  Country: US (occurrence: US)
  Receive Date: 20230913
  Receipt Date: 20231004
  Transmission Date: 20240110
  Serious: No
  Sender: FDA-Public Use
  Company Number: US-JNJFOC-20230924400

PATIENT
  Age: 4 Decade
  Sex: Male

DRUGS (1)
  1. SPRAVATO [Suspect]
     Active Substance: ESKETAMINE
     Indication: Product used for unknown indication
     Route: 065
     Dates: start: 20230206

REACTIONS (2)
  - Drug tolerance [Unknown]
  - Drug ineffective [Unknown]
